FAERS Safety Report 16856455 (Version 2)
Quarter: 2019Q3

REPORT INFORMATION
  Report Type: Spontaneous
  Country: JP (occurrence: JP)
  Receive Date: 20190926
  Receipt Date: 20190930
  Transmission Date: 20191005
  Serious: Yes (Other)
  Sender: FDA-Public Use
  Company Number: JP-PFIZER INC-2019395817

PATIENT
  Age: 74 Year
  Sex: Male
  Weight: 67 kg

DRUGS (12)
  1. PACLITAXEL. [Suspect]
     Active Substance: PACLITAXEL
     Dosage: 60 MG/M2, CYCLIC, DAY 15
     Dates: start: 201609
  2. CISPLATIN. [Concomitant]
     Active Substance: CISPLATIN
     Indication: GASTRIC CANCER STAGE IV
  3. PACLITAXEL. [Suspect]
     Active Substance: PACLITAXEL
     Dosage: 80 MG/M2, CYCLIC, ON DAY 1, 15
     Dates: start: 201608
  4. TS-1 [Concomitant]
     Active Substance: GIMERACIL\OTERACIL\TEGAFUR
     Indication: ADENOCARCINOMA
     Dosage: 80 MG/M2, CYCLIC (DAY 1 TO 14) (18 COURSES)
  5. RAMUCIRUMAB [Suspect]
     Active Substance: RAMUCIRUMAB
     Indication: ADENOCARCINOMA
     Dosage: 8 MG/KG, CYCLIC (DAY 1 AND 15- COURSE 1; COURSE-2 DAY 1 AND 15) OF A 28-DAY CYCLE
     Dates: start: 201605, end: 201606
  6. CISPLATIN. [Concomitant]
     Active Substance: CISPLATIN
     Indication: ADENOCARCINOMA
     Dosage: 60 MG/M2, CYCLIC DAY 8 OF A 21-DAY CYCLE) (18 COURSES)
  7. PACLITAXEL. [Suspect]
     Active Substance: PACLITAXEL
     Indication: ADENOCARCINOMA
     Dosage: 80 MG/M2, CYCLIC,ON DAY 1, 8, 15
     Dates: start: 201605
  8. PACLITAXEL. [Suspect]
     Active Substance: PACLITAXEL
     Dosage: 80 MG/M2, CYCLIC,ON DAY 1, 15
     Dates: start: 201607
  9. TS-1 [Concomitant]
     Active Substance: GIMERACIL\OTERACIL\TEGAFUR
     Indication: GASTRIC CANCER STAGE IV
  10. RAMUCIRUMAB [Suspect]
     Active Substance: RAMUCIRUMAB
     Dosage: 7 MG/KG, CYCLIC (COURSE 5 DAY 15 AND COURSE 6 DAY 1 AND 15) (DOSE REDUCED) OF A 28-DAY CYCLE
     Dates: start: 201609, end: 201610
  11. PACLITAXEL. [Suspect]
     Active Substance: PACLITAXEL
     Indication: GASTRIC CANCER STAGE IV
     Dosage: 80 MG/M2, CYCLIC,ON DAY 1, 8
     Dates: start: 201606
  12. RAMUCIRUMAB [Suspect]
     Active Substance: RAMUCIRUMAB
     Indication: GASTRIC CANCER STAGE IV
     Dosage: 8 MG/KG, CYCLIC (DAY-1, 15 OF COURSE 3; COURSE 4 DAY 1 AND 15; COURSE-5 DAY 1) OF A 28-DAY CYCLE
     Dates: start: 201607, end: 201609

REACTIONS (7)
  - Neutropenia [Unknown]
  - Hyponatraemia [Unknown]
  - Anaemia [Unknown]
  - Hypertension [Recovered/Resolved]
  - Hypoaesthesia [Recovering/Resolving]
  - Decreased appetite [Unknown]
  - Neuropathy peripheral [Recovering/Resolving]

NARRATIVE: CASE EVENT DATE: 201605
